FAERS Safety Report 5232653-2 (Version None)
Quarter: 2007Q1

REPORT INFORMATION
  Report Type: 
  Country: None (occurrence: None)
  Receive Date: 20070206
  Receipt Date: 20070206
  Transmission Date: 20070707
  Serious: Yes (Hospitalization)
  Sender: FDA-Public Use
  Company Number: None

PATIENT
  Sex: Male
  Weight: 68.0396 kg

DRUGS (10)
  1. MORPHINE [Suspect]
     Indication: PAIN
     Dosage: 15MG DAILY TO BID PO
     Route: 048
     Dates: start: 20061208, end: 20061214
  2. CARBIDOPA/LEVODOPA SA 50/200MG [Suspect]
     Indication: PARKINSON'S DISEASE
     Dosage: 50/200MG QHS PO
     Route: 048
     Dates: start: 20061208, end: 20061214
  3. WARFARIN SODIUM [Concomitant]
  4. SOTALOL HYDROCHLORIDE [Concomitant]
  5. LISINOPRIL [Concomitant]
  6. CARBIDOPA AND LEVODOPA [Concomitant]
  7. HYDROCODONE/APAP [Concomitant]
  8. CALCITONIN-SALMON [Concomitant]
  9. SENNA 2 [Concomitant]
  10. DOCUSATE [Concomitant]

REACTIONS (2)
  - FALL [None]
  - MENTAL STATUS CHANGES [None]
